FAERS Safety Report 8389472-8 (Version None)
Quarter: 2012Q2

REPORT INFORMATION
  Report Type: 
  Country: None (occurrence: None)
  Receive Date: 20120528
  Receipt Date: 20120515
  Transmission Date: 20120825
  Serious: Yes (Hospitalization, Other)
  Sender: FDA-Public Use
  Company Number: US-ELI_LILLY_AND_COMPANY-US201201001352

PATIENT
  Sex: Female

DRUGS (21)
  1. FENTANYL-100 [Concomitant]
     Indication: PAIN
     Dosage: 100 UG, UNK
  2. SIMVASTATIN [Concomitant]
  3. OXYCODONE HCL [Concomitant]
     Indication: PAIN
     Dosage: UNK, PRN
  4. NARCAN [Concomitant]
     Indication: HEADACHE
     Dosage: 1 UNK, PRN
  5. LIDOCAINE [Concomitant]
     Indication: PAIN
     Dosage: 0.5 DF, QD
  6. FORTEO [Suspect]
     Dosage: UNK UNK, UNKNOWN
     Route: 065
  7. LEVOTHYROXINE SODIUM [Concomitant]
     Indication: HYPERTHYROIDISM
     Dosage: 0.25 MG, UNK
  8. ACETAMINOPHEN [Concomitant]
     Indication: PAIN
  9. FORTEO [Suspect]
     Dosage: 20 UG, QD
     Route: 065
  10. CARVEDILOL [Concomitant]
  11. CLONAZEPAM [Concomitant]
     Indication: MUSCLE SPASMS
     Dosage: 0.25 MG, UNK
  12. DEMEROL [Concomitant]
     Dosage: 100 MG, PRN
  13. PHENERGAN [Concomitant]
     Indication: NAUSEA
     Dosage: UNK, PRN
  14. FORTEO [Suspect]
     Dosage: 20 UG, QD
     Route: 065
     Dates: start: 20120219
  15. FORTEO [Suspect]
     Dosage: 20 UG, QD
     Route: 065
  16. MS CONTIN [Concomitant]
     Dosage: 100 MG, BID
  17. ASPIRIN [Concomitant]
     Dosage: 81 MG, EACH MORNING
  18. LAMICTAL [Concomitant]
     Indication: STATUS EPILEPTICUS
     Dosage: 150 MG, QD
  19. ZANAFLEX [Concomitant]
     Indication: HEADACHE
     Dosage: 3 DF, MONTHLY (1/M)
  20. FORTEO [Suspect]
     Indication: OSTEOPOROSIS
     Dosage: 20 UG, QD
     Route: 065
     Dates: start: 20111207
  21. VALIUM [Concomitant]
     Indication: HEADACHE
     Dosage: 10 MG, PRN

REACTIONS (13)
  - HYPOACUSIS [None]
  - BONE DENSITY DECREASED [None]
  - CLAVICLE FRACTURE [None]
  - NAUSEA [None]
  - INJECTION SITE URTICARIA [None]
  - FALL [None]
  - WEIGHT DECREASED [None]
  - PRURITUS [None]
  - PRURITUS GENERALISED [None]
  - VOMITING [None]
  - DEVICE COMPONENT ISSUE [None]
  - BALANCE DISORDER [None]
  - FEMORAL NECK FRACTURE [None]
